APPROVED DRUG PRODUCT: LIDOCAINE HYDROCHLORIDE
Active Ingredient: LIDOCAINE HYDROCHLORIDE
Strength: 2%
Dosage Form/Route: INJECTABLE;INJECTION
Application: A202242 | Product #001
Applicant: RISING PHARMA HOLDING INC
Approved: Apr 11, 2014 | RLD: No | RS: No | Type: DISCN